FAERS Safety Report 24627458 (Version 3)
Quarter: 2025Q1

REPORT INFORMATION
  Report Type: Report from Study
  Country: US (occurrence: US)
  Receive Date: 20241116
  Receipt Date: 20250116
  Transmission Date: 20250408
  Serious: Yes (Hospitalization)
  Sender: AMGEN
  Company Number: US-AMGEN-USASP2024223436

PATIENT
  Age: 77 Year
  Sex: Female

DRUGS (1)
  1. AIMOVIG [Suspect]
     Active Substance: ERENUMAB-AOOE
     Indication: Migraine
     Route: 065

REACTIONS (10)
  - Adverse event [Unknown]
  - Accidental exposure to product [Unknown]
  - Incorrect disposal of product [Unknown]
  - Wrong technique in product usage process [Unknown]
  - Product administered at inappropriate site [Unknown]
  - Migraine [Unknown]
  - Product dose omission issue [Unknown]
  - Malaise [Unknown]
  - Concussion [Unknown]
  - Thyroid disorder [Unknown]

NARRATIVE: CASE EVENT DATE: 20241108
